FAERS Safety Report 5824340-4 (Version None)
Quarter: 2008Q3

REPORT INFORMATION
  Report Type: 
  Country: None (occurrence: None)
  Receive Date: 20080728
  Receipt Date: 20080723
  Transmission Date: 20090109
  Serious: Yes (Hospitalization, Other)
  Sender: FDA-Public Use
  Company Number: US-GILEAD-2008-0017427

PATIENT
  Sex: Female
  Weight: 64.014 kg

DRUGS (8)
  1. LETAIRIS [Suspect]
     Indication: PULMONARY HYPERTENSION
     Route: 048
     Dates: start: 20080426
  2. SILDENAFIL CITRATE [Concomitant]
  3. AGGRENOX [Concomitant]
  4. TOPROL-XL [Concomitant]
  5. NEURONTIN [Concomitant]
  6. ZOLOFT [Concomitant]
  7. PROTONIX [Concomitant]
  8. FOLIC ACID [Concomitant]

REACTIONS (1)
  - PANCREATITIS [None]
